FAERS Safety Report 12410601 (Version 1)
Quarter: 2016Q2

REPORT INFORMATION
  Report Type: Spontaneous
  Country: US (occurrence: None)
  Receive Date: 20160526
  Receipt Date: 20160526
  Transmission Date: 20160815
  Serious: Yes (Other)
  Sender: FDA-Public Use
  Company Number: None

PATIENT
  Age: 61 Year
  Sex: Female
  Weight: 68.49 kg

DRUGS (1)
  1. MOMETASONE NASAL SPRAY, 50 MCG [Suspect]
     Active Substance: MOMETASONE
     Indication: CHRONIC SINUSITIS
     Route: 045
     Dates: start: 20160421, end: 20160423

REACTIONS (2)
  - Burning sensation [None]
  - Blister [None]

NARRATIVE: CASE EVENT DATE: 20160423
